FAERS Safety Report 9268834 (Version 1)
Quarter: 2013Q2

REPORT INFORMATION
  Report Type: Spontaneous
  Country: IN (occurrence: IN)
  Receive Date: 20130502
  Receipt Date: 20130502
  Transmission Date: 20140414
  Serious: Yes (Hospitalization)
  Sender: FDA-Public Use
  Company Number: IN-MERCK-1305IND000915

PATIENT
  Age: 69 Year
  Sex: Female

DRUGS (1)
  1. JANUMET [Suspect]
     Dosage: 50/500 MG BID
     Route: 048
     Dates: end: 20130501

REACTIONS (3)
  - Asthenia [Not Recovered/Not Resolved]
  - Dysuria [Not Recovered/Not Resolved]
  - Blood glucose abnormal [Not Recovered/Not Resolved]
